FAERS Safety Report 25565714 (Version 1)
Quarter: 2025Q3

REPORT INFORMATION
  Report Type: Spontaneous
  Country: US (occurrence: None)
  Receive Date: 20250715
  Receipt Date: 20250715
  Transmission Date: 20251020
  Serious: Yes (Life-Threatening, Hospitalization, Other)
  Sender: FDA-CTU
  Company Number: None

PATIENT
  Age: 91 Year
  Sex: Male
  Weight: 81.65 kg

DRUGS (21)
  1. FLECAINIDE [Suspect]
     Active Substance: FLECAINIDE
     Indication: Atrial fibrillation
     Dates: start: 20240903, end: 20241009
  2. METOPROLOL SUCCINATE [Suspect]
     Active Substance: METOPROLOL SUCCINATE
  3. cyanocobalamin (Vit B-12) [Concomitant]
  4. Dextrin powder [Concomitant]
  5. DOCUSATE SODIUM [Concomitant]
     Active Substance: DOCUSATE SODIUM
  6. ELIQUIS [Concomitant]
     Active Substance: APIXABAN
  7. ERGOCALCIFEROL (VITAMIN D2) [Concomitant]
     Active Substance: ERGOCALCIFEROL
  8. FAMOTIDINE [Concomitant]
     Active Substance: FAMOTIDINE
  9. FLUOCINONIDE [Concomitant]
     Active Substance: FLUOCINONIDE
  10. GEMFIBROZIL [Concomitant]
     Active Substance: GEMFIBROZIL
  11. Hydrocortisone-pramoxine 2.5% - 1% rectal cream [Concomitant]
  12. LEVOTHYROXINE [Concomitant]
     Active Substance: LEVOTHYROXINE
  13. METRONIDAZOLE [Concomitant]
     Active Substance: METRONIDAZOLE
  14. Ocuvite Adult 50 Plus [Concomitant]
  15. PANTOPRAZOLE [Concomitant]
     Active Substance: PANTOPRAZOLE
  16. PRAVASTATIN [Concomitant]
     Active Substance: PRAVASTATIN
  17. SOTALOL [Concomitant]
     Active Substance: SOTALOL
  18. SPIRONOLACTONE [Concomitant]
     Active Substance: SPIRONOLACTONE
  19. TERAZOSIN [Concomitant]
     Active Substance: TERAZOSIN HYDROCHLORIDE
  20. Testosterone traansdermal gel [Concomitant]
  21. VOLTAREN ARTHRITIS PAIN [Concomitant]
     Active Substance: DICLOFENAC SODIUM

REACTIONS (4)
  - Anal incontinence [None]
  - Cardiogenic shock [None]
  - Pneumonia [None]
  - Exposure via ingestion [None]

NARRATIVE: CASE EVENT DATE: 20241001
